FAERS Safety Report 17090665 (Version 4)
Quarter: 2020Q3

REPORT INFORMATION
  Report Type: Report from Study
  Country: None (occurrence: US)
  Receive Date: 20191129
  Receipt Date: 20200901
  Transmission Date: 20201102
  Serious: Yes (Other)
  Sender: FDA-Public Use
  Company Number: US-ABBVIE-19K-163-3151613-00

PATIENT
  Age: 73 Year
  Sex: Male

DRUGS (5)
  1. IMBRUVICA [Suspect]
     Active Substance: IBRUTINIB
     Indication: CHRONIC LYMPHOCYTIC LEUKAEMIA
     Dosage: 420 MG, QD
     Route: 048
     Dates: start: 20190614
  2. IMBRUVICA [Suspect]
     Active Substance: IBRUTINIB
     Route: 048
  3. IMBRUVICA [Suspect]
     Active Substance: IBRUTINIB
     Dosage: 140 MG, TID
     Route: 048
     Dates: start: 20190627
  4. IMBRUVICA [Suspect]
     Active Substance: IBRUTINIB
     Route: 048
     Dates: start: 20190611
  5. IMBRUVICA [Suspect]
     Active Substance: IBRUTINIB
     Route: 048
     Dates: start: 20190727

REACTIONS (16)
  - Muscular weakness [Unknown]
  - Bowel movement irregularity [Recovered/Resolved]
  - Depression [Unknown]
  - Sinusitis [Not Recovered/Not Resolved]
  - Anxiety [Not Recovered/Not Resolved]
  - Blood count abnormal [Unknown]
  - Fatigue [Unknown]
  - Diarrhoea [Unknown]
  - Adverse event [Not Recovered/Not Resolved]
  - Balance disorder [Not Recovered/Not Resolved]
  - Oral herpes [Unknown]
  - Asthenia [Unknown]
  - Palpitations [Not Recovered/Not Resolved]
  - White blood cell count increased [Unknown]
  - Constipation [Recovered/Resolved]
  - Sinonasal obstruction [Recovered/Resolved]

NARRATIVE: CASE EVENT DATE: 201906
